FAERS Safety Report 8174876-9 (Version None)
Quarter: 2012Q1

REPORT INFORMATION
  Report Type: 
  Country: None (occurrence: None)
  Receive Date: 20120229
  Receipt Date: 20110405
  Transmission Date: 20120608
  Serious: No
  Sender: FDA-Public Use
  Company Number: US-GLAXOSMITHKLINE-A0921469A

PATIENT
  Age: 42 Year
  Sex: Female

DRUGS (3)
  1. ZOLOFT [Concomitant]
  2. VALTREX [Suspect]
     Indication: HERPES ZOSTER
     Dosage: 1TAB PER DAY
     Route: 048
     Dates: start: 20101101, end: 20110201
  3. WELLBUTRIN [Concomitant]

REACTIONS (2)
  - WEIGHT DECREASED [None]
  - DEPRESSION [None]
